FAERS Safety Report 18967815 (Version 1)
Quarter: 2021Q1

REPORT INFORMATION
  Report Type: Report from Study
  Country: BR (occurrence: BR)
  Receive Date: 20210304
  Receipt Date: 20210304
  Transmission Date: 20210420
  Serious: Yes (Other)
  Sender: FDA-Public Use
  Company Number: NVSC2021BR010132

PATIENT
  Age: 59 Year
  Sex: Female
  Weight: 84 kg

DRUGS (10)
  1. AFINITOR [Suspect]
     Active Substance: EVEROLIMUS
     Indication: SYNOVIAL CYST
  2. ZOMETA [Suspect]
     Active Substance: ZOLEDRONIC ACID
     Indication: SYNOVIAL CYST
     Dosage: UNK
     Route: 065
     Dates: start: 20191108, end: 20210105
  3. ZOMETA [Suspect]
     Active Substance: ZOLEDRONIC ACID
     Indication: BONE DISORDER
  4. KISQALI [Suspect]
     Active Substance: RIBOCICLIB
     Dosage: UNK
     Route: 065
     Dates: start: 202011
  5. AROMASIN [Concomitant]
     Active Substance: EXEMESTANE
     Indication: SYNOVIAL CYST
  6. KISQALI [Suspect]
     Active Substance: RIBOCICLIB
     Indication: BREAST CANCER
     Dosage: UNK
     Route: 065
     Dates: start: 20201009
  7. FULVESTRANT. [Suspect]
     Active Substance: FULVESTRANT
     Indication: PRODUCT USED FOR UNKNOWN INDICATION
     Dosage: UNK
     Route: 065
     Dates: start: 202011, end: 20210105
  8. AROMASIN [Concomitant]
     Active Substance: EXEMESTANE
     Indication: BONE DISORDER
     Dosage: UNK
     Route: 065
     Dates: start: 20191108, end: 202002
  9. AFINITOR [Suspect]
     Active Substance: EVEROLIMUS
     Indication: BONE DISORDER
     Dosage: UNK
     Route: 065
     Dates: start: 20191108, end: 202002
  10. ZOMETA [Suspect]
     Active Substance: ZOLEDRONIC ACID
     Indication: BREAST CANCER
     Dosage: UNK
     Route: 065
     Dates: start: 202002, end: 202009

REACTIONS (22)
  - Carbohydrate antigen 15-3 increased [Unknown]
  - Mean platelet volume decreased [Unknown]
  - Aspartate aminotransferase increased [Unknown]
  - Alanine aminotransferase increased [Unknown]
  - Mean cell haemoglobin increased [Unknown]
  - White blood cell count decreased [Unknown]
  - Fatigue [Recovering/Resolving]
  - Blood bilirubin decreased [Unknown]
  - Bone pain [Recovered/Resolved]
  - Hypermetabolism [Unknown]
  - Metastases to bone [Unknown]
  - Neutrophil count decreased [Unknown]
  - Mucosal inflammation [Recovered/Resolved]
  - Blood bilirubin unconjugated decreased [Unknown]
  - Red blood cell count decreased [Unknown]
  - Hyperhidrosis [Recovering/Resolving]
  - Drug ineffective [Unknown]
  - Carcinoembryonic antigen increased [Unknown]
  - Carbohydrate antigen 15-3 increased [Not Recovered/Not Resolved]
  - Monocyte count decreased [Unknown]
  - Blood lactate dehydrogenase increased [Unknown]
  - Mean cell volume increased [Unknown]

NARRATIVE: CASE EVENT DATE: 20200708
